FAERS Safety Report 10181209 (Version 1)
Quarter: 2014Q2

REPORT INFORMATION
  Report Type: Spontaneous
  Country: US (occurrence: US)
  Receive Date: 20140519
  Receipt Date: 20140519
  Transmission Date: 20141212
  Serious: No
  Sender: FDA-Public Use
  Company Number: US-AMGEN INC.-USASP2014029167

PATIENT
  Sex: Female

DRUGS (1)
  1. PROLIA [Suspect]
     Indication: OSTEOPOROSIS POSTMENOPAUSAL
     Dosage: UNK
     Route: 065
     Dates: start: 20140313

REACTIONS (8)
  - Bladder prolapse [Unknown]
  - Chills [Unknown]
  - Abdominal discomfort [Unknown]
  - Burning sensation [Unknown]
  - Pruritus generalised [Unknown]
  - Generalised erythema [Unknown]
  - Palpitations [Unknown]
  - Rash macular [Not Recovered/Not Resolved]
